FAERS Safety Report 25940580 (Version 1)
Quarter: 2025Q4

REPORT INFORMATION
  Report Type: Spontaneous
  Country: KR (occurrence: KR)
  Receive Date: 20251020
  Receipt Date: 20251020
  Transmission Date: 20260117
  Serious: Yes (Other)
  Sender: MYLAN
  Company Number: KR-MYLANLABS-2025M1087141

PATIENT
  Age: 79 Year
  Sex: Male

DRUGS (12)
  1. LYRICA [Suspect]
     Active Substance: PREGABALIN
     Indication: Pain
     Dosage: 75 MILLIGRAM, QD
     Dates: start: 20190413, end: 20190413
  2. LYRICA [Suspect]
     Active Substance: PREGABALIN
     Dosage: 75 MILLIGRAM, QD
     Route: 065
     Dates: start: 20190413, end: 20190413
  3. LYRICA [Suspect]
     Active Substance: PREGABALIN
     Dosage: 75 MILLIGRAM, QD
     Route: 065
     Dates: start: 20190413, end: 20190413
  4. LYRICA [Suspect]
     Active Substance: PREGABALIN
     Dosage: 75 MILLIGRAM, QD
     Dates: start: 20190413, end: 20190413
  5. ITOPRIDE HYDROCHLORIDE [Suspect]
     Active Substance: ITOPRIDE HYDROCHLORIDE
     Indication: Pain
     Dosage: UNK, QD
     Dates: start: 20190413, end: 20190413
  6. ITOPRIDE HYDROCHLORIDE [Suspect]
     Active Substance: ITOPRIDE HYDROCHLORIDE
     Dosage: UNK, QD
     Route: 065
     Dates: start: 20190413, end: 20190413
  7. ITOPRIDE HYDROCHLORIDE [Suspect]
     Active Substance: ITOPRIDE HYDROCHLORIDE
     Dosage: UNK, QD
     Route: 065
     Dates: start: 20190413, end: 20190413
  8. ITOPRIDE HYDROCHLORIDE [Suspect]
     Active Substance: ITOPRIDE HYDROCHLORIDE
     Dosage: UNK, QD
     Dates: start: 20190413, end: 20190413
  9. EPERISONE HYDROCHLORIDE [Suspect]
     Active Substance: EPERISONE HYDROCHLORIDE
     Indication: Pain
     Dosage: UNK, QD
     Dates: start: 20190413, end: 20190413
  10. EPERISONE HYDROCHLORIDE [Suspect]
     Active Substance: EPERISONE HYDROCHLORIDE
     Dosage: UNK, QD
     Route: 065
     Dates: start: 20190413, end: 20190413
  11. EPERISONE HYDROCHLORIDE [Suspect]
     Active Substance: EPERISONE HYDROCHLORIDE
     Dosage: UNK, QD
     Route: 065
     Dates: start: 20190413, end: 20190413
  12. EPERISONE HYDROCHLORIDE [Suspect]
     Active Substance: EPERISONE HYDROCHLORIDE
     Dosage: UNK, QD
     Dates: start: 20190413, end: 20190413

REACTIONS (5)
  - Hypotension [Recovered/Resolved]
  - Pruritus [Recovered/Resolved]
  - Depressed level of consciousness [Recovered/Resolved]
  - Skin burning sensation [Recovered/Resolved]
  - Off label use [Unknown]

NARRATIVE: CASE EVENT DATE: 20190413
